FAERS Safety Report 24938662 (Version 1)
Quarter: 2025Q1

REPORT INFORMATION
  Report Type: Spontaneous
  Country: US (occurrence: None)
  Receive Date: 20250206
  Receipt Date: 20250206
  Transmission Date: 20250409
  Serious: Yes (Hospitalization)
  Sender: FDA-CTU
  Company Number: None

PATIENT
  Age: 50 Year
  Sex: Male
  Weight: 81 kg

DRUGS (2)
  1. .DELTA.8-TETRAHYDROCANNABINOL\HERBALS [Suspect]
     Active Substance: .DELTA.8-TETRAHYDROCANNABINOL\HERBALS
     Indication: Sleep disorder
     Dates: start: 20250126, end: 20250201
  2. IBUPROFEN [Concomitant]
     Active Substance: IBUPROFEN

REACTIONS (6)
  - Substance use [None]
  - Abdominal pain [None]
  - Abdominal pain [None]
  - Nausea [None]
  - Vomiting [None]
  - Toxicity to various agents [None]

NARRATIVE: CASE EVENT DATE: 20250201
